FAERS Safety Report 8367219-9 (Version None)
Quarter: 2012Q2

REPORT INFORMATION
  Report Type: 
  Country: None (occurrence: None)
  Receive Date: 20120517
  Receipt Date: 20120510
  Transmission Date: 20120825
  Serious: Yes (Hospitalization)
  Sender: FDA-Public Use
  Company Number: PHHY2012ES040758

PATIENT
  Age: 66 Year
  Sex: Male

DRUGS (6)
  1. LOSARTAN POTASSIUM [Concomitant]
  2. PANTOPRAZOLE [Concomitant]
  3. MYCOPHENOLATE MOFETIL [Suspect]
     Dosage: 1 G, UNK
     Dates: start: 20060519
  4. PREDNISONE TAB [Interacting]
     Indication: HEART TRANSPLANT
     Dosage: 5 MG, DAILY
     Route: 048
     Dates: start: 20060519
  5. CALCITRIOL [Concomitant]
  6. CERTICAN [Interacting]
     Indication: HEART TRANSPLANT
     Dosage: 1.5 MG, UNK
     Dates: start: 20080530

REACTIONS (4)
  - CHEST PAIN [None]
  - DRUG INTERACTION [None]
  - SKIN LESION [None]
  - HERPES ZOSTER [None]
